FAERS Safety Report 6216614-2 (Version None)
Quarter: 2009Q2

REPORT INFORMATION
  Report Type: 
  Country: None (occurrence: None)
  Receive Date: 20090605
  Receipt Date: 20090602
  Transmission Date: 20091009
  Serious: Yes (Death)
  Sender: FDA-Public Use
  Company Number: PHHY2009CO21543

PATIENT
  Sex: Male

DRUGS (1)
  1. DIOVAN [Suspect]
     Indication: CARDIAC FAILURE
     Dosage: 1 TABLET (40 MG) /DAY
     Route: 048
     Dates: start: 20050101, end: 20090502

REACTIONS (1)
  - SUDDEN DEATH [None]
